FAERS Safety Report 7498740-3 (Version None)
Quarter: 2011Q2

REPORT INFORMATION
  Report Type: 
  Country: None (occurrence: None)
  Receive Date: 20110524
  Receipt Date: 20110511
  Transmission Date: 20111010
  Serious: Yes (Other)
  Sender: FDA-Public Use
  Company Number: MX-ELI_LILLY_AND_COMPANY-MX201104002625

PATIENT
  Age: 64 Year
  Sex: Female
  Weight: 80 kg

DRUGS (2)
  1. CYMBALTA [Suspect]
     Indication: BACK PAIN
     Dosage: 60 MG, EACH EVENING
     Dates: start: 20100401
  2. OMEPRAZOLE [Concomitant]
     Indication: GASTRITIS
     Dosage: UNK, UNKNOWN

REACTIONS (10)
  - COAGULOPATHY [None]
  - ASTHENIA [None]
  - PYREXIA [None]
  - GENERALISED OEDEMA [None]
  - HYPERTENSION [None]
  - TRANSAMINASES INCREASED [None]
  - EPILEPSY [None]
  - HAEMORRHAGE [None]
  - BLOOD GLUCOSE INCREASED [None]
  - ARTHRALGIA [None]
